FAERS Safety Report 7669968-4 (Version None)
Quarter: 2011Q3

REPORT INFORMATION
  Report Type: 
  Country: None (occurrence: None)
  Receive Date: 20110808
  Receipt Date: 20110729
  Transmission Date: 20111222
  Serious: Yes (Other)
  Sender: FDA-Public Use
  Company Number: GXKR2009GB06605

PATIENT
  Age: 49 Year
  Sex: Female
  Weight: 89 kg

DRUGS (13)
  1. OXYGEN [Concomitant]
  2. DICLOFENAC SODIUM [Concomitant]
  3. PROPOFOL [Concomitant]
  4. METHYLENE BLUE [Interacting]
     Indication: PARATHYROIDECTOMY
     Dosage: UNK
  5. ATRACURIUM BESYLATE [Concomitant]
  6. NITROUS OXIDE [Concomitant]
     Dosage: 8 MG, UNK
  7. ONDANSETRON [Concomitant]
  8. INDOMETHACIN [Concomitant]
  9. ANESTHETICS [Concomitant]
  10. PAROXETINE HCL [Suspect]
     Indication: DEPRESSION
     Dosage: 30 MG, DAILY
  11. ENFLURANE [Concomitant]
  12. MORPHINE [Concomitant]
     Dosage: 7.5 MG, UNK
  13. ZOFRAN [Concomitant]
     Dosage: 4 MG, UNK

REACTIONS (10)
  - SEROTONIN SYNDROME [None]
  - CLONUS [None]
  - HYPERTHERMIA [None]
  - DRUG INTERACTION [None]
  - AGITATION [None]
  - MYDRIASIS [None]
  - HYPERTENSION [None]
  - CONFUSIONAL STATE [None]
  - HYPERREFLEXIA [None]
  - DYSKINESIA [None]
